FAERS Safety Report 23884780 (Version 4)
Quarter: 2024Q3

REPORT INFORMATION
  Report Type: Spontaneous
  Country: US (occurrence: US)
  Receive Date: 20240522
  Receipt Date: 20240930
  Transmission Date: 20241016
  Serious: No
  Sender: BRISTOL MYERS SQUIBB
  Company Number: US-BRISTOL-MYERS SQUIBB COMPANY-2024-079864

PATIENT
  Age: 80 Year
  Sex: Male

DRUGS (1)
  1. ORENCIA [Suspect]
     Active Substance: ABATACEPT
     Indication: Product used for unknown indication
     Route: 058

REACTIONS (5)
  - Cystitis [Unknown]
  - Prostatic disorder [Unknown]
  - Injection site pruritus [Unknown]
  - Injection site mass [Unknown]
  - Skin discolouration [Unknown]

NARRATIVE: CASE EVENT DATE: 20240926
